FAERS Safety Report 23778940 (Version 2)
Quarter: 2024Q2

REPORT INFORMATION
  Report Type: Spontaneous
  Country: US (occurrence: US)
  Receive Date: 20240424
  Receipt Date: 20240425
  Transmission Date: 20240715
  Serious: No
  Sender: FDA-Public Use
  Company Number: US-BIOVITRUM-2024-US-006234

PATIENT
  Age: 76 Year
  Sex: Female

DRUGS (1)
  1. DOPTELET [Suspect]
     Active Substance: AVATROMBOPAG MALEATE
     Indication: Immune thrombocytopenia
     Dosage: QD
     Route: 048
     Dates: start: 20240329

REACTIONS (7)
  - Swelling face [Not Recovered/Not Resolved]
  - Infection [Unknown]
  - Facial pain [Unknown]
  - Pruritus [Unknown]
  - Ocular hyperaemia [Unknown]
  - Visual impairment [Unknown]
  - Asthenopia [Unknown]
